FAERS Safety Report 9291194 (Version 1)
Quarter: 2012Q4

REPORT INFORMATION
  Report Type: Spontaneous
  Country: AU (occurrence: None)
  Receive Date: 20121123
  Receipt Date: 20121123
  Transmission Date: 20130627
  Serious: Yes (Hospitalization)
  Sender: FDA-Public Use
  Company Number: 2012BI030200

PATIENT
  Age: 57 Year
  Sex: Female

DRUGS (8)
  1. FAMPRIDINE [Suspect]
     Indication: MULTIPLE SCLEROSIS
     Route: 048
     Dates: start: 20120405, end: 20120709
  2. FAMPRIDINE [Suspect]
     Indication: MULTIPLE SCLEROSIS
     Route: 048
     Dates: start: 20120719
  3. AMANTADINE (AMANTADINE) [Concomitant]
  4. PANADOL (PARACETAMOL) [Concomitant]
  5. TRESOS B (VITAMINS, OTHER COMBINATIONS) [Concomitant]
  6. OSTELIN (ERGOCALCIFEROL) [Concomitant]
  7. CYMBALTA (SSRI) [Concomitant]
  8. VOLTAREN (DICLOFENAC POTASSIUM) [Concomitant]

REACTIONS (1)
  - Traumatic intracranial haemorrhage [None]
